FAERS Safety Report 10046651 (Version 2)
Quarter: 2014Q2

REPORT INFORMATION
  Report Type: Report from Study
  Country: CA (occurrence: CA)
  Receive Date: 20140331
  Receipt Date: 20140410
  Transmission Date: 20141212
  Serious: Yes (Hospitalization, Other)
  Sender: FDA-Public Use
  Company Number: CA-ROCHE-1369796

PATIENT
  Age: 31 Year
  Sex: Female
  Weight: 58.4 kg

DRUGS (9)
  1. RITUXAN [Suspect]
     Indication: THROMBOTIC THROMBOCYTOPENIC PURPURA
     Dosage: FOR 4 CYCLES
     Route: 042
     Dates: start: 20100820
  2. RITUXAN [Suspect]
     Dosage: START FROM 25/MAR/2014
     Route: 042
  3. RITUXAN [Suspect]
     Dosage: 375 MG/M2 FOR 4 CYCLES WEEKLY
     Route: 042
     Dates: start: 201111
  4. RITUXAN [Suspect]
     Route: 042
     Dates: start: 20111229
  5. LANSOPRAZOLE [Concomitant]
  6. ACETAMINOPHEN [Concomitant]
     Route: 048
     Dates: start: 20140325
  7. BENADRYL (CANADA) [Concomitant]
     Route: 048
     Dates: start: 20140325
  8. DEMEROL [Concomitant]
     Route: 065
  9. GRAVOL [Concomitant]
     Route: 042

REACTIONS (8)
  - Thrombotic thrombocytopenic purpura [Not Recovered/Not Resolved]
  - Von Willebrand^s factor multimers abnormal [Unknown]
  - Migraine [Unknown]
  - Blood lactate dehydrogenase increased [Unknown]
  - Unevaluable event [Not Recovered/Not Resolved]
  - Weight increased [Unknown]
  - Off label use [Unknown]
  - Infusion related reaction [Recovered/Resolved]
